FAERS Safety Report 20694669 (Version 6)
Quarter: 2022Q4

REPORT INFORMATION
  Report Type: Report from Study
  Country: US (occurrence: US)
  Receive Date: 20220411
  Receipt Date: 20221112
  Transmission Date: 20230113
  Serious: Yes (Hospitalization)
  Sender: FDA-Public Use
  Company Number: US-TAKEDA-US202023588

PATIENT
  Age: 50 Year
  Sex: Female

DRUGS (2)
  1. HUMAN IMMUNOGLOBULIN G\HYALURONIDASE RECOMBINANT HUMAN [Suspect]
     Active Substance: HUMAN IMMUNOGLOBULIN G\HYALURONIDASE RECOMBINANT HUMAN
     Indication: Immunodeficiency common variable
     Dosage: 27.5 GRAM, MONTHLY
     Route: 065
  2. HUMAN IMMUNOGLOBULIN G\HYALURONIDASE RECOMBINANT HUMAN [Suspect]
     Active Substance: HUMAN IMMUNOGLOBULIN G\HYALURONIDASE RECOMBINANT HUMAN
     Indication: Primary immunodeficiency syndrome

REACTIONS (18)
  - Metapneumovirus infection [Unknown]
  - Chest discomfort [Unknown]
  - Hypersensitivity [Unknown]
  - COVID-19 [Unknown]
  - Lymphadenopathy [Unknown]
  - Immunoglobulins decreased [Unknown]
  - Blood magnesium decreased [Unknown]
  - Cough [Unknown]
  - Skin reaction [Unknown]
  - Exposure to fungus [Unknown]
  - Rash macular [Unknown]
  - Blister [Unknown]
  - Headache [Unknown]
  - Fatigue [Unknown]
  - Gastrointestinal disorder [Unknown]
  - Product availability issue [Unknown]
  - Rash pruritic [Recovered/Resolved]
  - Burning sensation [Recovered/Resolved]

NARRATIVE: CASE EVENT DATE: 20211101
